FAERS Safety Report 12518088 (Version 1)
Quarter: 2016Q2

REPORT INFORMATION
  Report Type: Spontaneous
  Country: FR (occurrence: FR)
  Receive Date: 20160630
  Receipt Date: 20160630
  Transmission Date: 20160815
  Serious: Yes (Other)
  Sender: FDA-Public Use
  Company Number: FR-BAYER-2016-125897

PATIENT
  Age: 66 Year
  Weight: 110 kg

DRUGS (14)
  1. XARELTO [Suspect]
     Active Substance: RIVAROXABAN
     Dosage: 15 MG, UNK
  2. PIPERACILLIN [Concomitant]
     Active Substance: PIPERACILLIN
     Dosage: UNK
  3. PRASUGREL [Concomitant]
     Active Substance: PRASUGREL
     Dosage: 10 MG, UNK
  4. KARDEGIC [Concomitant]
     Active Substance: ASPIRIN LYSINE
     Dosage: UNK
  5. TARDYFERON [Concomitant]
     Active Substance: FERROUS SULFATE\FOLIC ACID
     Dosage: UNK
  6. ACETYLSALICYLIC ACID (} 100 MG) [Suspect]
     Active Substance: ASPIRIN
     Dosage: 160 MG, UNK
  7. VANCOMYCIN [Suspect]
     Active Substance: VANCOMYCIN
     Dosage: UNK
  8. ZYLORIC [Concomitant]
     Active Substance: ALLOPURINOL
     Dosage: UNK
  9. INEXIUM [Concomitant]
     Active Substance: ESOMEPRAZOLE
     Dosage: UNK
  10. LOXEN [Concomitant]
     Active Substance: NICARDIPINE HYDROCHLORIDE
     Dosage: UNK
  11. ILOMEDINE [Suspect]
     Active Substance: ILOPROST TROMETHAMINE
     Indication: PERIPHERAL ISCHAEMIA
     Dosage: UNK
     Dates: end: 20160622
  12. VALSARTAN. [Concomitant]
     Active Substance: VALSARTAN
     Dosage: UNK
  13. FLAGYL [Concomitant]
     Active Substance: METRONIDAZOLE\METRONIDAZOLE HYDROCHLORIDE
     Dosage: UNK
  14. TAHOR [Concomitant]
     Active Substance: ATORVASTATIN CALCIUM
     Dosage: UNK

REACTIONS (2)
  - Peripheral ischaemia [None]
  - Treatment noncompliance [None]
